FAERS Safety Report 17931948 (Version 1)
Quarter: 2020Q2

REPORT INFORMATION
  Report Type: Spontaneous
  Country: DK (occurrence: DK)
  Receive Date: 20200624
  Receipt Date: 20200624
  Transmission Date: 20200714
  Serious: Yes (Death, Hospitalization)
  Sender: FDA-Public Use
  Company Number: DK-TEVA-2020-DK-1789494

PATIENT
  Age: 91 Year
  Sex: Female

DRUGS (8)
  1. CENTYL MED KALIUMKLORID [Concomitant]
     Active Substance: BENDROFLUMETHIAZIDE\POTASSIUM CHLORIDE
     Indication: HYPERTENSION
     Dosage: STRENGTH: 1.25+573 MG,UNIT DOSE :1 DOSAGEFORM
     Route: 048
     Dates: start: 201809
  2. PARACETAMOL [Concomitant]
     Active Substance: ACETAMINOPHEN
     Indication: PAIN
     Dosage: UNIT DOSE :4000 MILLIGRAM
     Route: 048
     Dates: start: 20200417
  3. FUSIDIC ACID [Concomitant]
     Active Substance: FUSIDIC ACID
     Indication: DERMATITIS
     Dosage: UNIT DOSE :2 DOSAGEFORM
     Route: 003
     Dates: start: 202003
  4. ALENDRONIC ACID [Concomitant]
     Active Substance: ALENDRONIC ACID
     Indication: OSTEOPOROSIS
     Dosage: UNIT DOSE : 70 MG
     Route: 048
     Dates: start: 201707
  5. OXYCODONE [Concomitant]
     Active Substance: OXYCODONE
     Indication: PAIN
     Dosage: UNIT DOSE : 5 MG,DOSAGE: DOSING ACCORDING TO WRITTEN INSTRUCTIONS
     Route: 048
     Dates: start: 20200417
  6. BISACODYL. [Concomitant]
     Active Substance: BISACODYL
     Indication: CONSTIPATION
     Dosage: UNIT DOSE:10 MILLIGRAM
     Route: 048
     Dates: start: 202004
  7. CLOPIDOGREL ^TEVA^ (HYDROGEN SULFATE) [Suspect]
     Active Substance: CLOPIDOGREL BISULFATE
     Indication: THROMBOSIS PROPHYLAXIS
     Dosage: UNIT DOSE : 75 MG
     Route: 048
     Dates: start: 20160801
  8. BRALTUS [Concomitant]
     Active Substance: TIOTROPIUM BROMIDE
     Indication: CHRONIC OBSTRUCTIVE PULMONARY DISEASE
     Dosage: UNIT DOSE:10 MICROGRAM
     Route: 055
     Dates: start: 201805

REACTIONS (2)
  - Cerebral haemorrhage [Fatal]
  - Brain herniation [Fatal]

NARRATIVE: CASE EVENT DATE: 20200511
